FAERS Safety Report 17415516 (Version 1)
Quarter: 2020Q1

REPORT INFORMATION
  Report Type: Spontaneous
  Country: US (occurrence: US)
  Receive Date: 20200213
  Receipt Date: 20200213
  Transmission Date: 20200409
  Serious: Yes (Life-Threatening)
  Sender: FDA-Public Use
  Company Number: US-IGSA-SR10009866

PATIENT
  Age: 84 Year
  Sex: Female

DRUGS (3)
  1. ACE INHIBITORS [Concomitant]
     Active Substance: UNSPECIFIED INGREDIENT
  2. HUMAN SERUM ALBUMIN [Suspect]
     Active Substance: ALBUMIN HUMAN
     Indication: HYPERVISCOSITY SYNDROME
  3. HUMAN SERUM ALBUMIN [Suspect]
     Active Substance: ALBUMIN HUMAN
     Indication: PLASMAPHERESIS

REACTIONS (11)
  - Pulmonary oedema [Recovered/Resolved]
  - Dyspnoea [Recovered/Resolved]
  - Paraesthesia [Recovered/Resolved]
  - Oxygen saturation decreased [Recovered/Resolved]
  - Transfusion-related acute lung injury [Recovered/Resolved]
  - Flushing [Recovered/Resolved]
  - Hypertension [Recovered/Resolved]
  - Body temperature increased [Recovered/Resolved]
  - Agitation [Recovered/Resolved]
  - Hypotension [Recovered/Resolved]
  - Unresponsive to stimuli [Recovered/Resolved]
